FAERS Safety Report 9137492 (Version 1)
Quarter: 2013Q1

REPORT INFORMATION
  Report Type: Spontaneous
  Country: US (occurrence: US)
  Receive Date: 20130219
  Receipt Date: 20130219
  Transmission Date: 20140127
  Serious: No
  Sender: FDA-Public Use
  Company Number: US-BRISTOL-MYERS SQUIBB COMPANY-17146267

PATIENT
  Age: 59 Year
  Sex: Female

DRUGS (1)
  1. ORENCIA [Suspect]
     Dosage: LAST INF: 29OCT2012?DOSAGE FORM:POWDER FOR INJ,LYOPHILIZED FOR SOL?STRENGTH:250MG,VIAL.
     Route: 042
     Dates: start: 201208

REACTIONS (2)
  - Rheumatoid arthritis [Not Recovered/Not Resolved]
  - Adverse event [Unknown]
